FAERS Safety Report 5455063-1 (Version None)
Quarter: 2007Q3

REPORT INFORMATION
  Report Type: 
  Country: None (occurrence: None)
  Receive Date: 20070913
  Receipt Date: 20070823
  Transmission Date: 20080115
  Serious: Yes (Other)
  Sender: FDA-Public Use
  Company Number: 6037467

PATIENT
  Age: 66 Year
  Sex: Male

DRUGS (2)
  1. CLARITHROMYCIN [Suspect]
     Indication: BRONCHITIS
     Dosage: 400 MG (200 MG, 2 IN 1 D)
  2. DIGOXIN [Suspect]
     Indication: CARDIAC DISORDER
     Dosage: 0,0536 MG (0,125 MG, 3 IN 1 WK); 0,0357 MG (0,125 MG, 2 IN 1 WK)

REACTIONS (3)
  - CARDIOACTIVE DRUG LEVEL INCREASED [None]
  - DRUG INTERACTION [None]
  - THERAPEUTIC AGENT TOXICITY [None]
